FAERS Safety Report 8762596 (Version 1)
Quarter: 2012Q4

REPORT INFORMATION
  Report Type: 
  Country: FR (occurrence: FR)
  Receive Date: 20120830
  Receipt Date: 20120830
  Transmission Date: 20130627
  Serious: Yes (Death)
  Sender: FDA-Public Use
  Company Number: FR-BAXTER-2012BAX014988

PATIENT
  Age: 37 Year
  Sex: Female

DRUGS (2)
  1. ENDOXAN 2000 MG, LYOPHILISAT POUR SOLUTION INJECTABLE [Suspect]
     Indication: BONE MARROW CONDITIONING REGIMEN
     Route: 042
  2. ENDOXAN 2000 MG, LYOPHILISAT POUR SOLUTION INJECTABLE [Suspect]
     Indication: STEM CELL TRANSPLANT
     Route: 042

REACTIONS (2)
  - Cardiac tamponade [Fatal]
  - Pericardial effusion [Fatal]
